FAERS Safety Report 6026691-X (Version None)
Quarter: 2008Q4

REPORT INFORMATION
  Report Type: 
  Country: None (occurrence: None)
  Receive Date: 20081231
  Receipt Date: 20081219
  Transmission Date: 20090506
  Serious: Yes (Disabling)
  Sender: FDA-Public Use
  Company Number: THYR-1000109

PATIENT
  Age: 66 Year
  Sex: Female
  Weight: 68.3 kg

DRUGS (11)
  1. THYROGEN [Suspect]
     Dosage: 0.9 MG, QD, INTRAMUSCULAR; INTRAMUSCULAR; INTRAMUSCULAR
     Route: 030
     Dates: start: 20071001, end: 20071002
  2. THYROGEN [Suspect]
     Dosage: 0.9 MG, QD, INTRAMUSCULAR; INTRAMUSCULAR; INTRAMUSCULAR
     Route: 030
     Dates: start: 20080301, end: 20080301
  3. THYROGEN [Suspect]
     Dosage: 0.9 MG, QD, INTRAMUSCULAR; INTRAMUSCULAR; INTRAMUSCULAR
     Route: 030
     Dates: start: 20081020, end: 20081021
  4. PREDNISONE TAB [Concomitant]
  5. ALPRAZOLAM [Concomitant]
  6. VALTREX [Concomitant]
  7. OXYCONTIN [Concomitant]
  8. SUCRALFATE [Concomitant]
  9. PREMARIN [Concomitant]
  10. SPIRONOLOCATONE (SPIRONOLACTONE) [Concomitant]
  11. SYNTHROID [Concomitant]

REACTIONS (23)
  - AMNESIA [None]
  - ANXIETY [None]
  - ARTHRITIS [None]
  - BLOOD PRESSURE SYSTOLIC INCREASED [None]
  - COGNITIVE DISORDER [None]
  - CONFUSIONAL STATE [None]
  - COUGH [None]
  - DISTURBANCE IN ATTENTION [None]
  - EMOTIONAL DISTRESS [None]
  - FACIAL PALSY [None]
  - FATIGUE [None]
  - HAEMATOCRIT INCREASED [None]
  - HAEMOGLOBIN INCREASED [None]
  - LYMPHADENOPATHY [None]
  - MENTAL IMPAIRMENT [None]
  - NEUROLOGICAL SYMPTOM [None]
  - NEUTROPHILIA [None]
  - OROPHARYNGEAL PAIN [None]
  - PALPITATIONS [None]
  - PHARYNGEAL ERYTHEMA [None]
  - PYREXIA [None]
  - URINARY TRACT DISORDER [None]
  - VISUAL IMPAIRMENT [None]
